FAERS Safety Report 7663958-3 (Version None)
Quarter: 2011Q3

REPORT INFORMATION
  Report Type: 
  Country: None (occurrence: None)
  Receive Date: 20110805
  Receipt Date: 20100816
  Transmission Date: 20111222
  Serious: No
  Sender: FDA-Public Use
  Company Number: US-ABBOTT-10P-163-0665291-00

PATIENT
  Sex: Female
  Weight: 71.732 kg

DRUGS (3)
  1. METFORMIN HCL [Concomitant]
     Indication: TYPE 2 DIABETES MELLITUS
  2. NIASPAN [Suspect]
     Indication: BLOOD CHOLESTEROL INCREASED
     Dosage: 500 MG EVERY NIGHT
     Dates: start: 20100726
  3. VALTURNA [Concomitant]
     Indication: HYPERTENSION

REACTIONS (4)
  - SKIN BURNING SENSATION [None]
  - URTICARIA [None]
  - PRURITUS [None]
  - FLUSHING [None]
